FAERS Safety Report 13925326 (Version 1)
Quarter: 2017Q3

REPORT INFORMATION
  Report Type: Report from Study
  Country: CH (occurrence: CH)
  Receive Date: 20170831
  Receipt Date: 20170831
  Transmission Date: 20171127
  Serious: Yes (Life-Threatening, Hospitalization)
  Sender: FDA-Public Use
  Company Number: CH-CELGENEUS-CHE-20170510192

PATIENT
  Age: 74 Year
  Sex: Male
  Weight: 89.3 kg

DRUGS (11)
  1. KCL [Concomitant]
     Active Substance: POTASSIUM CHLORIDE
     Indication: HYPOKALAEMIA
     Dosage: 60 MILLIMOLE
     Route: 048
     Dates: start: 20170524
  2. AZACITIDINE. [Suspect]
     Active Substance: AZACITIDINE
     Indication: ACUTE MYELOID LEUKAEMIA
     Dosage: 75 MG/M2
     Route: 058
     Dates: start: 20170508, end: 20170516
  3. NOXAFIL [Concomitant]
     Active Substance: POSACONAZOLE
     Indication: ANTIFUNGAL PROPHYLAXIS
     Dosage: 900 MG
     Route: 048
     Dates: start: 20170516, end: 20170531
  4. VALTRAX [Concomitant]
     Indication: ANTIVIRAL PROPHYLAXIS
     Dosage: 1000 MG
     Route: 065
     Dates: start: 20170515
  5. ACIDUM FOLICUM [Concomitant]
     Active Substance: FOLIC ACID
     Indication: BONE MARROW FAILURE
     Dosage: 5 MG
     Route: 048
     Dates: start: 20170525
  6. AG-221 [Suspect]
     Active Substance: ENASIDENIB
     Indication: ACUTE MYELOID LEUKAEMIA
     Dosage: 100 MG
     Route: 048
     Dates: start: 20170508, end: 20170527
  7. AZACITIDINE. [Suspect]
     Active Substance: AZACITIDINE
     Dosage: 75 MG/M2
     Route: 058
     Dates: start: 20170530
  8. AG-221 [Suspect]
     Active Substance: ENASIDENIB
     Route: 048
     Dates: start: 20170530
  9. BACTRIM [Concomitant]
     Active Substance: SULFAMETHOXAZOLE\TRIMETHOPRIM
     Indication: PNEUMONITIS
     Dosage: 800/160 MG
     Route: 048
     Dates: start: 20170516
  10. ZYLORIC [Concomitant]
     Active Substance: ALLOPURINOL
     Indication: PROPHYLAXIS
     Dosage: 300 MG
     Route: 048
     Dates: start: 20170516
  11. PHOSPHATE [Concomitant]
     Active Substance: UNSPECIFIED INGREDIENT
     Indication: HYPOPHOSPHATAEMIA
     Dosage: 1000 MILLIGRAM
     Route: 048
     Dates: start: 20170518

REACTIONS (1)
  - Acute promyelocytic leukaemia differentiation syndrome [Recovered/Resolved]

NARRATIVE: CASE EVENT DATE: 20170525
